FAERS Safety Report 8017995-X (Version None)
Quarter: 2012Q1

REPORT INFORMATION
  Report Type: 
  Country: None (occurrence: None)
  Receive Date: 20120103
  Receipt Date: 20111227
  Transmission Date: 20120608
  Serious: Yes (Other)
  Sender: FDA-Public Use
  Company Number: US-JNJFOC-20111211227

PATIENT
  Sex: Female
  Weight: 54.43 kg

DRUGS (2)
  1. PROZAC [Concomitant]
     Indication: DEPRESSION
     Route: 048
     Dates: start: 20110901
  2. SIMPONI [Suspect]
     Indication: PSORIATIC ARTHROPATHY
     Route: 058
     Dates: start: 20110201

REACTIONS (4)
  - DIARRHOEA [None]
  - ABDOMINAL PAIN [None]
  - DEVICE MALFUNCTION [None]
  - DRUG DOSE OMISSION [None]
